FAERS Safety Report 7328198-6 (Version None)
Quarter: 2011Q1

REPORT INFORMATION
  Report Type: 
  Country: None (occurrence: None)
  Receive Date: 20110303
  Receipt Date: 20110224
  Transmission Date: 20110831
  Serious: Yes (Hospitalization, Other)
  Sender: FDA-Public Use
  Company Number: US-NOVOPROD-324105

PATIENT
  Age: 64 Year
  Sex: Male
  Weight: 138.32 kg

DRUGS (2)
  1. LANTUS [Concomitant]
     Indication: TYPE 2 DIABETES MELLITUS
     Dosage: 56 U, QD
     Route: 058
  2. VICTOZA [Suspect]
     Indication: TYPE 2 DIABETES MELLITUS
     Dosage: 1.8 MG, QD
     Route: 058
     Dates: start: 20100801

REACTIONS (4)
  - HEPATIC CIRRHOSIS [None]
  - BLOOD GLUCOSE INCREASED [None]
  - NEPHROLITHIASIS [None]
  - NAUSEA [None]
